FAERS Safety Report 25880538 (Version 1)
Quarter: 2025Q4

REPORT INFORMATION
  Report Type: Spontaneous
  Country: US (occurrence: US)
  Receive Date: 20251004
  Receipt Date: 20251004
  Transmission Date: 20260117
  Serious: Yes (Other)
  Sender: Kenvue
  Company Number: US-KENVUE-20250915283

PATIENT
  Age: 81 Year
  Sex: Female

DRUGS (2)
  1. NEUTROGENA ULTRA SHEER BODY MIST SUNSCREEN BROAD SPECTRUM SPF 70 (AVO\ [Suspect]
     Active Substance: AVOBENZONE\HOMOSALATE\OCTISALATE\OCTOCRYLENE
     Indication: Prophylaxis against solar radiation
     Dosage: SPRAYED LIBERALLY ALL OVER, TWICE
     Route: 061
     Dates: start: 20250911, end: 202509
  2. NEUTROGENA ULTRA SHEER BODY MIST SUNSCREEN BROAD SPECTRUM SPF 70 (AVO\ [Suspect]
     Active Substance: AVOBENZONE\HOMOSALATE\OCTISALATE\OCTOCRYLENE
     Dosage: SPRAYED LIBERALLY, TWICE
     Route: 061
     Dates: start: 20250911, end: 202509

REACTIONS (1)
  - Burns third degree [Recovering/Resolving]

NARRATIVE: CASE EVENT DATE: 20250911
